FAERS Safety Report 8271927-8 (Version None)
Quarter: 2012Q1

REPORT INFORMATION
  Report Type: 
  Country: None (occurrence: None)
  Receive Date: 20120312
  Receipt Date: 20111212
  Transmission Date: 20120608
  Serious: No
  Sender: FDA-Public Use
  Company Number: 2011SP057934

PATIENT
  Age: 40 Year
  Sex: Male

DRUGS (4)
  1. TRILEPTAL [Concomitant]
  2. KLONOPIN [Concomitant]
  3. SAPHRIS [Suspect]
     Indication: SCHIZOAFFECTIVE DISORDER BIPOLAR TYPE
     Dosage: 5 MG;BID;PO ; 10 MG;BID;PO
     Route: 048
     Dates: start: 20111201
  4. SAPHRIS [Suspect]
     Indication: SCHIZOAFFECTIVE DISORDER BIPOLAR TYPE
     Dosage: 5 MG;BID;PO ; 10 MG;BID;PO
     Route: 048

REACTIONS (2)
  - VOMITING [None]
  - NAUSEA [None]
